FAERS Safety Report 15922544 (Version 1)
Quarter: 2019Q1

REPORT INFORMATION
  Report Type: Spontaneous
  Country: PT (occurrence: PT)
  Receive Date: 20190206
  Receipt Date: 20190206
  Transmission Date: 20190417
  Serious: Yes (Life-Threatening, Other)
  Sender: FDA-Public Use
  Company Number: PT-ALEXION-A201901543

PATIENT

DRUGS (3)
  1. SOLIRIS [Suspect]
     Active Substance: ECULIZUMAB
     Indication: THROMBOTIC MICROANGIOPATHY
     Route: 065
  2. SOLIRIS [Suspect]
     Active Substance: ECULIZUMAB
     Indication: OFF LABEL USE
  3. SOLIRIS [Suspect]
     Active Substance: ECULIZUMAB
     Indication: ALLOGENIC BONE MARROW TRANSPLANTATION THERAPY

REACTIONS (4)
  - Chronic kidney disease [Unknown]
  - Thrombotic microangiopathy [Unknown]
  - Pulmonary alveolar haemorrhage [Unknown]
  - Off label use [Unknown]
